FAERS Safety Report 21699478 (Version 2)
Quarter: 2022Q4

REPORT INFORMATION
  Report Type: Report from Study
  Country: MX (occurrence: MX)
  Receive Date: 20221208
  Receipt Date: 20221228
  Transmission Date: 20230113
  Serious: Yes (Death, Other)
  Sender: FDA-Public Use
  Company Number: MX-BAYER-2022A157514

PATIENT
  Age: 91 Year
  Sex: Male

DRUGS (1)
  1. NEXAVAR [Suspect]
     Active Substance: SORAFENIB
     Indication: Hepatocellular carcinoma
     Dosage: 200 MG, BID
     Route: 048
     Dates: start: 20221109

REACTIONS (5)
  - Death [Fatal]
  - Respiratory tract infection [Recovering/Resolving]
  - Lymphadenitis [Not Recovered/Not Resolved]
  - Sputum discoloured [Recovering/Resolving]
  - Off label use [None]

NARRATIVE: CASE EVENT DATE: 20221101
